FAERS Safety Report 6057419-5 (Version None)
Quarter: 2009Q1

REPORT INFORMATION
  Report Type: 
  Country: None (occurrence: None)
  Receive Date: 20090126
  Receipt Date: 20090126
  Transmission Date: 20090719
  Serious: Yes (Hospitalization)
  Sender: FDA-Public Use
  Company Number: None

PATIENT
  Age: 61 Year
  Sex: Male
  Weight: 90.7194 kg

DRUGS (1)
  1. NASONEX [Suspect]
     Indication: SINUSITIS
     Dosage: 2 SPRAYS TO EACH NOSTRIL DAILY

REACTIONS (4)
  - BALANCE DISORDER [None]
  - HEAD INJURY [None]
  - LOSS OF CONSCIOUSNESS [None]
  - SCAR [None]
